FAERS Safety Report 4692758-1 (Version None)
Quarter: 2005Q2

REPORT INFORMATION
  Report Type: 
  Country: None (occurrence: None)
  Receive Date: 20050617
  Receipt Date: 20050414
  Transmission Date: 20051028
  Serious: Yes (Other)
  Sender: FDA-Public Use
  Company Number: US-ROCHE-402125

PATIENT
  Age: 47 Year
  Weight: 45.4 kg

DRUGS (6)
  1. FUZEON [Suspect]
     Indication: DRUG USE FOR UNKNOWN INDICATION
     Route: 058
  2. VIDEX [Concomitant]
     Route: 048
  3. VIREAD [Concomitant]
     Route: 048
  4. DAPSONE [Concomitant]
     Route: 048
  5. KALETRA [Concomitant]
     Route: 048
  6. VANCOMYCIN [Concomitant]
     Route: 042

REACTIONS (1)
  - DEEP VEIN THROMBOSIS [None]
